FAERS Safety Report 9843448 (Version 1)
Quarter: 2013Q4

REPORT INFORMATION
  Report Type: Spontaneous
  Country: US (occurrence: None)
  Receive Date: 20131219
  Receipt Date: 20131219
  Transmission Date: 20140711
  Serious: Yes (Hospitalization)
  Sender: FDA-Public Use
  Company Number: 163-20785-13081582

PATIENT
  Age: 73 Year
  Sex: Female

DRUGS (1)
  1. THALOMID (THALIDOMIDE) (CAPSULES) [Suspect]
     Indication: LEPROSY
     Dosage: 1 IN 1 D
     Route: 048
     Dates: start: 200812

REACTIONS (5)
  - Hypertension [None]
  - Chest pain [None]
  - Asthenia [None]
  - Dizziness [None]
  - Nausea [None]
